FAERS Safety Report 6965177-2 (Version None)
Quarter: 2010Q3

REPORT INFORMATION
  Report Type: 
  Country: None (occurrence: None)
  Receive Date: 20100903
  Receipt Date: 20100827
  Transmission Date: 20110219
  Serious: Yes (Disabling, Other)
  Sender: FDA-Public Use
  Company Number: GB-PFIZER INC-2010093789

PATIENT
  Age: 60 Year
  Sex: Female

DRUGS (4)
  1. CYCLOPHOSPHAMIDE [Suspect]
     Indication: T-CELL LYMPHOMA
  2. DOXORUBICIN HCL [Suspect]
     Indication: T-CELL LYMPHOMA
  3. VINCRISTINE [Suspect]
     Indication: T-CELL LYMPHOMA
  4. PREDNISOLONE [Suspect]
     Indication: T-CELL LYMPHOMA

REACTIONS (2)
  - BLINDNESS [None]
  - REVERSIBLE POSTERIOR LEUKOENCEPHALOPATHY SYNDROME [None]
